FAERS Safety Report 9282904 (Version 2)
Quarter: 2013Q2

REPORT INFORMATION
  Report Type: Spontaneous
  Country: JP (occurrence: None)
  Receive Date: 20130503
  Receipt Date: 20130603
  Transmission Date: 20140414
  Serious: Yes (Hospitalization)
  Sender: FDA-Public Use
  Company Number: DSJ-2013-03940

PATIENT
  Age: 66 Year
  Sex: Male
  Weight: 55 kg

DRUGS (7)
  1. OLMETEC [Suspect]
     Indication: HYPERTENSION
     Dosage: 1 IN 1 DAY.
     Route: 048
     Dates: start: 20121023, end: 201303
  2. BLINDED CS-747S (TABLET) [Suspect]
     Indication: ISCHAEMIC STROKE
     Route: 048
     Dates: start: 20121201
  3. LIVALO [Suspect]
     Indication: DYSLIPIDAEMIA
     Dosage: 1 IN 1 DAY.
     Route: 048
     Dates: start: 20121213, end: 201303
  4. FAMOTIDINE D (FAMOTIDINE)(TABLET)(FAMOTIDINE) [Concomitant]
  5. NORVASC (AMLODIPINE BESILATE)(TABLET)(AMLODIPINE BESILATE) [Concomitant]
  6. BEROM (VOGLIBOSE)(TABLET)(VOGLIBOSE) [Concomitant]
  7. FASTIC (NATEGLINIDE)(TABLET)(NATEGLINIDE) [Concomitant]

REACTIONS (1)
  - Hepatic function abnormal [None]
